FAERS Safety Report 8801988 (Version 2)
Quarter: 2012Q4

REPORT INFORMATION
  Report Type: 
  Country: US (occurrence: US)
  Receive Date: 20120921
  Receipt Date: 20120928
  Transmission Date: 20130627
  Serious: Yes (Other)
  Sender: FDA-Public Use
  Company Number: US-BAYER-2012-096063

PATIENT
  Sex: Female

DRUGS (1)
  1. MIRENA [Suspect]
     Dosage: 20 ?g/d, CONT
     Route: 015

REACTIONS (3)
  - Neisseria test positive [None]
  - Chlamydia test positive [None]
  - Pelvic pain [None]
